FAERS Safety Report 18608102 (Version 10)
Quarter: 2022Q1

REPORT INFORMATION
  Report Type: Report from Study
  Country: CA (occurrence: CA)
  Receive Date: 20201212
  Receipt Date: 20220218
  Transmission Date: 20220423
  Serious: Yes (Hospitalization, Other)
  Sender: FDA-Public Use
  Company Number: CA-SHIRE-CA202019465

PATIENT
  Age: 54 Year
  Sex: Female
  Weight: 74 kg

DRUGS (29)
  1. TEDUGLUTIDE [Suspect]
     Active Substance: TEDUGLUTIDE
     Indication: Short-bowel syndrome
     Dosage: 3.12 MILLIGRAM, QD
     Route: 065
     Dates: start: 20160112
  2. TEDUGLUTIDE [Suspect]
     Active Substance: TEDUGLUTIDE
     Indication: Short-bowel syndrome
     Dosage: 3.12 MILLIGRAM, QD
     Route: 065
     Dates: start: 20160112
  3. TEDUGLUTIDE [Suspect]
     Active Substance: TEDUGLUTIDE
     Indication: Short-bowel syndrome
     Dosage: 3.12 MILLIGRAM, QD
     Route: 065
     Dates: start: 20160112
  4. TEDUGLUTIDE [Suspect]
     Active Substance: TEDUGLUTIDE
     Indication: Short-bowel syndrome
     Dosage: 3.12 MILLIGRAM, QD
     Route: 065
     Dates: start: 20160112
  5. TEDUGLUTIDE [Suspect]
     Active Substance: TEDUGLUTIDE
     Dosage: 3.12 MILLIGRAM, QOD
     Route: 065
     Dates: start: 20160112
  6. TEDUGLUTIDE [Suspect]
     Active Substance: TEDUGLUTIDE
     Dosage: 3.12 MILLIGRAM, QOD
     Route: 065
     Dates: start: 20160112
  7. TEDUGLUTIDE [Suspect]
     Active Substance: TEDUGLUTIDE
     Dosage: 3.12 MILLIGRAM, QOD
     Route: 065
     Dates: start: 20160112
  8. TEDUGLUTIDE [Suspect]
     Active Substance: TEDUGLUTIDE
     Dosage: 3.12 MILLIGRAM, QOD
     Route: 065
     Dates: start: 20160112
  9. TEDUGLUTIDE [Suspect]
     Active Substance: TEDUGLUTIDE
     Dosage: 3.68 MILLIGRAM, QD
     Route: 065
     Dates: start: 20160112
  10. TEDUGLUTIDE [Suspect]
     Active Substance: TEDUGLUTIDE
     Dosage: 3.68 MILLIGRAM, QD
     Route: 065
     Dates: start: 20160112
  11. TEDUGLUTIDE [Suspect]
     Active Substance: TEDUGLUTIDE
     Dosage: 3.68 MILLIGRAM, QD
     Route: 065
     Dates: start: 20160112
  12. TEDUGLUTIDE [Suspect]
     Active Substance: TEDUGLUTIDE
     Dosage: 3.68 MILLIGRAM, QD
     Route: 065
     Dates: start: 20160112
  13. TEDUGLUTIDE [Suspect]
     Active Substance: TEDUGLUTIDE
     Dosage: 3.68 MILLIGRAM, QOD
     Route: 058
     Dates: start: 20160112
  14. TEDUGLUTIDE [Suspect]
     Active Substance: TEDUGLUTIDE
     Dosage: 3.68 MILLIGRAM, QOD
     Route: 058
     Dates: start: 20160112
  15. TEDUGLUTIDE [Suspect]
     Active Substance: TEDUGLUTIDE
     Dosage: 3.68 MILLIGRAM, QOD
     Route: 058
     Dates: start: 20160112
  16. TEDUGLUTIDE [Suspect]
     Active Substance: TEDUGLUTIDE
     Dosage: 3.68 MILLIGRAM, QOD
     Route: 058
     Dates: start: 20160112
  17. POTASSIUM [Concomitant]
     Active Substance: POTASSIUM
     Dosage: UNK
     Route: 065
     Dates: end: 20200514
  18. CODEINE [Concomitant]
     Active Substance: CODEINE
     Dosage: 30 MILLIGRAM, QID
     Route: 048
     Dates: start: 20200610
  19. CODEINE [Concomitant]
     Active Substance: CODEINE
     Dosage: 6 DOSAGE FORM
  20. LOVENOX [Concomitant]
     Active Substance: ENOXAPARIN SODIUM
     Indication: Thrombosis
     Dosage: UNK, BID
     Route: 058
     Dates: end: 20200514
  21. INNOHEP [Concomitant]
     Active Substance: TINZAPARIN SODIUM
     Indication: Thrombosis
     Dosage: 14000 INTERNATIONAL UNIT, QD
     Route: 058
  22. PREDNISONE [Concomitant]
     Active Substance: PREDNISONE
     Dosage: UNK
     Route: 065
  23. HUMIRA [Concomitant]
     Active Substance: ADALIMUMAB
     Dosage: UNK
     Route: 065
  24. REMICADE [Concomitant]
     Active Substance: INFLIXIMAB
     Dosage: UNK
     Route: 065
  25. MAGNESIUM [Concomitant]
     Active Substance: MAGNESIUM
     Dosage: 15 MILLIGRAM, QID
     Route: 061
  26. PREVACID [Concomitant]
     Active Substance: LANSOPRAZOLE
     Dosage: 1 DOSAGE FORM, BID
     Route: 065
  27. TPN [Concomitant]
     Active Substance: AMINO ACIDS\DEXTROSE\ELECTROLYTES NOS\SOYBEAN OIL
     Dosage: UNK
     Route: 042
     Dates: end: 20161010
  28. TPN [Concomitant]
     Active Substance: AMINO ACIDS\DEXTROSE\ELECTROLYTES NOS\SOYBEAN OIL
     Dosage: 1000 MILLILITER
     Route: 042
     Dates: start: 20200516
  29. SODIUM CHLORIDE [Concomitant]
     Active Substance: SODIUM CHLORIDE
     Route: 065

REACTIONS (14)
  - Cystitis [Unknown]
  - Kidney infection [Unknown]
  - Blood magnesium decreased [Unknown]
  - Abdominal discomfort [Unknown]
  - Gastrointestinal stoma output increased [Unknown]
  - Stoma site oedema [Not Recovered/Not Resolved]
  - Blood magnesium abnormal [Unknown]
  - Bladder neoplasm [Not Recovered/Not Resolved]
  - Neoplasm malignant [Not Recovered/Not Resolved]
  - Bladder cancer [Not Recovered/Not Resolved]
  - Transurethral bladder resection [Unknown]
  - Blood magnesium increased [Unknown]
  - Central venous catheterisation [Unknown]
  - Therapy interrupted [Not Recovered/Not Resolved]

NARRATIVE: CASE EVENT DATE: 20200515
